FAERS Safety Report 5402599-5 (Version None)
Quarter: 2007Q3

REPORT INFORMATION
  Report Type: 
  Country: None (occurrence: None)
  Receive Date: 20070730
  Receipt Date: 20070730
  Transmission Date: 20080115
  Serious: Yes (Hospitalization)
  Sender: FDA-Public Use
  Company Number: None

PATIENT
  Age: 48 Year
  Sex: Female
  Weight: 61.2356 kg

DRUGS (1)
  1. LEVAQUIN [Suspect]
     Indication: URINARY TRACT INFECTION
     Dosage: 500MG 1 PER DAY PO
     Route: 048
     Dates: start: 20070619, end: 20070619

REACTIONS (11)
  - ASTHENIA [None]
  - CONFUSIONAL STATE [None]
  - DEPERSONALISATION [None]
  - GLOSSODYNIA [None]
  - HEADACHE [None]
  - HERPES ZOSTER [None]
  - MYALGIA [None]
  - NAUSEA [None]
  - PARAESTHESIA [None]
  - TENDON PAIN [None]
  - VERTIGO [None]
